FAERS Safety Report 15411082 (Version 1)
Quarter: 2018Q3

REPORT INFORMATION
  Report Type: Spontaneous
  Country: US (occurrence: US)
  Receive Date: 20180919
  Receipt Date: 20180919
  Transmission Date: 20181010
  Serious: No
  Sender: FDA-Public Use
  Company Number: None

PATIENT
  Age: 21 Year
  Sex: Female
  Weight: 45 kg

DRUGS (1)
  1. INJECTABLE TESTOSTERONE (I DO NOT HAVE ACCESS TO THE BOTTLE) [Suspect]
     Active Substance: TESTOSTERONE
     Indication: DYSPHORIA
     Dates: start: 20171220, end: 20180225

REACTIONS (2)
  - Anxiety [None]
  - Dysphoria [None]

NARRATIVE: CASE EVENT DATE: 20171220
